FAERS Safety Report 20894520 (Version 4)
Quarter: 2022Q3

REPORT INFORMATION
  Report Type: Spontaneous
  Country: US (occurrence: US)
  Receive Date: 20220531
  Receipt Date: 20220825
  Transmission Date: 20221027
  Serious: Yes (Other)
  Sender: FDA-Public Use
  Company Number: US-BRISTOL-MYERS SQUIBB COMPANY-2022-035970

PATIENT
  Age: 85 Year
  Sex: Female

DRUGS (2)
  1. REVLIMID [Suspect]
     Active Substance: LENALIDOMIDE
     Indication: Vitamin D deficiency
     Dosage: 1-14 OF A 21 DAY CYCLE
     Route: 048
     Dates: start: 20220505
  2. REVLIMID [Suspect]
     Active Substance: LENALIDOMIDE
     Indication: Plasma cell myeloma
     Dosage: 1-14 OF A 21 DAY CYCLE
     Route: 048

REACTIONS (6)
  - Nausea [Unknown]
  - Drug intolerance [Unknown]
  - Pain [Unknown]
  - Dry mouth [Unknown]
  - Intentional product use issue [Unknown]
  - Off label use [Unknown]
